FAERS Safety Report 11976858 (Version 1)
Quarter: 2016Q1

REPORT INFORMATION
  Report Type: Spontaneous
  Country: TW (occurrence: TW)
  Receive Date: 20160129
  Receipt Date: 20160129
  Transmission Date: 20160526
  Serious: Yes (Other)
  Sender: FDA-Public Use
  Company Number: TW-AMGEN-TWNSP2016010387

PATIENT
  Age: 63 Year
  Sex: Female

DRUGS (2)
  1. ENBREL [Suspect]
     Active Substance: ETANERCEPT
     Dosage: 50 MG, Q2WK
     Route: 058
     Dates: start: 201410
  2. ENBREL [Suspect]
     Active Substance: ETANERCEPT
     Indication: RHEUMATOID ARTHRITIS
     Dosage: 25 MG TWICE PER WEEK
     Route: 058
     Dates: end: 201410

REACTIONS (2)
  - Spondylolisthesis [Recovering/Resolving]
  - Lumbar spinal stenosis [Recovering/Resolving]

NARRATIVE: CASE EVENT DATE: 20160106
